FAERS Safety Report 12846676 (Version 1)
Quarter: 2016Q4

REPORT INFORMATION
  Report Type: Other
  Country: JP (occurrence: JP)
  Receive Date: 20161014
  Receipt Date: 20161014
  Transmission Date: 20170207
  Serious: No
  Sender: FDA-Public Use
  Company Number: JP-LUPIN PHARMACEUTICALS INC.-2016-04238

PATIENT
  Age: 59 Year
  Sex: Female

DRUGS (6)
  1. NIACIN. [Suspect]
     Active Substance: NIACIN
     Dosage: DECREASING BY 20 MG/DAY FOR 5 DAYS
     Route: 042
  2. NIACIN. [Concomitant]
     Active Substance: NIACIN
     Indication: ERYTHROMELALGIA
     Dosage: 100 MG
     Route: 048
  3. NIACIN. [Concomitant]
     Active Substance: NIACIN
     Indication: POISONING
     Dosage: DECREASING PER 20MG UNTIL DISCONTINUATION AFTER 2 MONTHS
     Route: 048
  4. NIACIN. [Suspect]
     Active Substance: NIACIN
     Indication: ERYTHROMELALGIA
     Dosage: 20 MG
     Route: 042
  5. NIACIN. [Suspect]
     Active Substance: NIACIN
     Dosage: 100 MG
     Route: 042
  6. NIACIN. [Suspect]
     Active Substance: NIACIN
     Indication: POISONING
     Dosage: INCREASED BY 20 MG/DAY FOR 5 DAYS
     Route: 042

REACTIONS (2)
  - Erythema [Recovering/Resolving]
  - Pruritus [Recovering/Resolving]
